FAERS Safety Report 20840141 (Version 1)
Quarter: 2022Q2

REPORT INFORMATION
  Report Type: Spontaneous
  Country: NL (occurrence: NL)
  Receive Date: 20220517
  Receipt Date: 20220517
  Transmission Date: 20220720
  Serious: Yes (Other)
  Sender: FDA-Public Use
  Company Number: None

PATIENT
  Sex: Male
  Weight: 72 kg

DRUGS (5)
  1. TAMSULOSIN [Suspect]
     Active Substance: TAMSULOSIN
     Indication: Benign prostatic hyperplasia
     Dosage: .4 MILLIGRAM DAILY; TAMSULOSIN MGA 0.4MG / BRAND NAME NOT SPECIFIED, THERAPY END DATE : ASKU
     Dates: start: 2018
  2. PRAVASTATIN [Concomitant]
     Active Substance: PRAVASTATIN
     Dosage: PRAVASTATIN 20MG / BRAND NAME NOT SPECIFIED, THERAPY START DATE AND END DATE : ASKU
  3. CLOPIDOGREL BESILATE [Concomitant]
     Active Substance: CLOPIDOGREL BESILATE
     Dosage: CLOPIDOGREL 75MG / GREPID 75MG, THERAPY START DATE AND END DATE : ASKU
  4. PROMETHAZINE [Concomitant]
     Active Substance: PROMETHAZINE HYDROCHLORIDE
     Dosage: THERAPY START DATE AND END DATE : ASKU, PROMETHAZINE 25MG / BRAND NAME NOT SPECIFIED
  5. METOPROLOL SUCCINATE [Concomitant]
     Active Substance: METOPROLOL SUCCINATE
     Dosage: METOPROLOL TABLET MGA 25MG (SUCCINATE) / BRAND NAME NOT SPECIFIED, THERAPY START DATE AND END DATE

REACTIONS (2)
  - Retrograde ejaculation [Not Recovered/Not Resolved]
  - Gynaecomastia [Not Recovered/Not Resolved]
